FAERS Safety Report 10565839 (Version 1)
Quarter: 2014Q4

REPORT INFORMATION
  Report Type: Spontaneous
  Country: DK (occurrence: DK)
  Receive Date: 20141105
  Receipt Date: 20141105
  Transmission Date: 20150529
  Serious: Yes (Death)
  Sender: FDA-Public Use
  Company Number: DK-BAXTER-2014BAX064569

PATIENT
  Age: 72 Year
  Sex: Male

DRUGS (3)
  1. PHYSIONEAL 35 GLUCOSE 1,36 % W/V/13,6 MG/ML [Suspect]
     Active Substance: CALCIUM CHLORIDE\DEXTROSE\MAGNESIUM CHLORIDE\SODIUM CHLORIDE SOLUTION
     Indication: PERITONEAL DIALYSIS
     Route: 033
     Dates: end: 20141024
  2. EXTRANEAL [Suspect]
     Active Substance: CALCIUM CHLORIDE\ICODEXTRIN\MAGNESIUM CHLORIDE\SODIUM CHLORIDE\SODIUM LACTATE
     Indication: PERITONEAL DIALYSIS
     Route: 033
     Dates: end: 20141024
  3. PHYSIONEAL 35 GLUCOSE 2,27 % W/V/22,7 MG/ML [Suspect]
     Active Substance: CALCIUM CHLORIDE\DEXTROSE\MAGNESIUM CHLORIDE\SODIUM CHLORIDE SOLUTION
     Indication: PERITONEAL DIALYSIS
     Route: 033
     Dates: end: 20141024

REACTIONS (1)
  - Death [Fatal]

NARRATIVE: CASE EVENT DATE: 20141024
